FAERS Safety Report 24280445 (Version 1)
Quarter: 2024Q3

REPORT INFORMATION
  Report Type: Spontaneous
  Country: US (occurrence: US)
  Receive Date: 20240904
  Receipt Date: 20240904
  Transmission Date: 20241017
  Serious: Yes (Other)
  Sender: AUROBINDO
  Company Number: US-AUROBINDO-AUR-APL-2024-042764

PATIENT
  Age: 81 Year
  Sex: Male
  Weight: 57.06 kg

DRUGS (4)
  1. DOXAZOSIN [Suspect]
     Active Substance: DOXAZOSIN MESYLATE
     Indication: Product used for unknown indication
     Dosage: 8 MILLIGRAM
     Route: 065
  2. JAKAFI [Suspect]
     Active Substance: RUXOLITINIB
     Indication: Myelofibrosis
     Dosage: 20 MILLIGRAM, TWO TIMES A DAY
     Route: 048
     Dates: start: 20240607, end: 20240702
  3. LEVOTHYROXINE [Concomitant]
     Active Substance: LEVOTHYROXINE\LEVOTHYROXINE SODIUM
     Indication: Product used for unknown indication
     Dosage: UNK
     Route: 065
  4. LOSARTAN POTASSIUM [Concomitant]
     Active Substance: LOSARTAN POTASSIUM
     Indication: Product used for unknown indication
     Dosage: UNK
     Route: 065

REACTIONS (14)
  - Haemoglobin decreased [Unknown]
  - Diarrhoea [Unknown]
  - Weight decreased [Unknown]
  - Dehydration [Unknown]
  - Urine output increased [Unknown]
  - Splenomegaly [Unknown]
  - Blood pressure decreased [Unknown]
  - Heart rate decreased [Unknown]
  - Withdrawal syndrome [Unknown]
  - Fatigue [Unknown]
  - Palpitations [Unknown]
  - Gait disturbance [Unknown]
  - Electrocardiogram abnormal [Unknown]
  - Dizziness [Unknown]

NARRATIVE: CASE EVENT DATE: 20240607
